FAERS Safety Report 8296055-7 (Version None)
Quarter: 2012Q2

REPORT INFORMATION
  Report Type: 
  Country: None (occurrence: None)
  Receive Date: 20120418
  Receipt Date: 20110609
  Transmission Date: 20120825
  Serious: Yes (Other)
  Sender: FDA-Public Use
  Company Number: US-GLAXOSMITHKLINE-A0933532A

PATIENT
  Sex: Female

DRUGS (1)
  1. AVANDIA [Suspect]
     Indication: DIABETES MELLITUS
     Route: 048
     Dates: start: 20050101, end: 20100101

REACTIONS (3)
  - TRANSIENT ISCHAEMIC ATTACK [None]
  - CEREBROVASCULAR ACCIDENT [None]
  - CARDIAC FAILURE CONGESTIVE [None]
